FAERS Safety Report 21140834 (Version 1)
Quarter: 2022Q3

REPORT INFORMATION
  Report Type: Spontaneous
  Country: PL (occurrence: PL)
  Receive Date: 20220728
  Receipt Date: 20220728
  Transmission Date: 20221027
  Serious: Yes (Hospitalization, Other)
  Sender: FDA-Public Use
  Company Number: PL-STRIDES ARCOLAB LIMITED-2022SP009341

PATIENT
  Age: 55 Year
  Sex: Female

DRUGS (10)
  1. TACROLIMUS [Suspect]
     Active Substance: TACROLIMUS
     Indication: Liver transplant
     Dosage: UNK
     Route: 065
  2. PREDNISOLONE [Suspect]
     Active Substance: PREDNISOLONE
     Indication: Liver transplant
     Dosage: UNK
     Route: 065
  3. MYCOPHENOLATE MOFETIL [Suspect]
     Active Substance: MYCOPHENOLATE MOFETIL
     Indication: Liver transplant
     Dosage: UNK
  4. METHYLPREDNISOLONE [Suspect]
     Active Substance: METHYLPREDNISOLONE
     Indication: Liver transplant
     Dosage: UNK
     Route: 065
  5. MEROPENEM [Concomitant]
     Active Substance: MEROPENEM
     Indication: Antibiotic prophylaxis
     Dosage: 1 GRAM,THREE TIMES
     Route: 065
  6. VANCOMYCIN [Concomitant]
     Active Substance: VANCOMYCIN
     Indication: Antibiotic prophylaxis
     Dosage: 1 GRAM,TWO TIMES
     Route: 065
  7. TAZOBACTAM [Concomitant]
     Active Substance: TAZOBACTAM
     Indication: Antibiotic prophylaxis
     Dosage: 4.5 GRAM,THREE TIMES
     Route: 065
  8. FLUCONAZOLE [Concomitant]
     Active Substance: FLUCONAZOLE
     Indication: Antifungal prophylaxis
     Dosage: 600 MILLIGRAM
     Route: 065
  9. FONDAPARINUX [Concomitant]
     Active Substance: FONDAPARINUX
     Indication: Anticoagulant therapy
     Dosage: UNK
     Route: 065
  10. ORNITHINE [Concomitant]
     Active Substance: ORNITHINE
     Indication: Drug therapy
     Dosage: UNK
     Route: 065

REACTIONS (11)
  - Hepatorenal syndrome [Recovered/Resolved]
  - Metabolic acidosis [Unknown]
  - Renal impairment [Recovered/Resolved]
  - Toxicity to various agents [Recovered/Resolved]
  - Overdose [Recovered/Resolved]
  - Cytomegalovirus infection [Unknown]
  - Epstein-Barr virus infection [Unknown]
  - Oesophageal candidiasis [Unknown]
  - Enterobacter infection [Unknown]
  - Candida infection [Unknown]
  - Urinary tract infection [Unknown]
